FAERS Safety Report 8012598-5 (Version None)
Quarter: 2011Q4

REPORT INFORMATION
  Report Type: 
  Country: None (occurrence: None)
  Receive Date: 20111229
  Receipt Date: 20111219
  Transmission Date: 20120403
  Serious: Yes (Hospitalization, Other)
  Sender: FDA-Public Use
  Company Number: US-BAYER-2011-039167

PATIENT
  Age: 46 Year
  Sex: Female
  Weight: 58.957 kg

DRUGS (19)
  1. YAZ [Suspect]
     Indication: CONTRACEPTION
     Dosage: UNK
     Dates: start: 20010101, end: 20100101
  2. YAZ [Suspect]
  3. YASMIN [Suspect]
     Indication: PREMENSTRUAL SYNDROME
  4. IMITREX [Concomitant]
     Dosage: 50 MG, UNK
     Route: 048
     Dates: start: 20080616
  5. NIFEDIPINE [Concomitant]
     Dosage: 30 MG, UNK
     Route: 048
     Dates: start: 20080616
  6. LUNESTA [Concomitant]
     Dosage: 3 MG, UNK
     Route: 048
     Dates: start: 20080821
  7. WELLBUTRIN XL [Concomitant]
     Dosage: 150 MG, UNK
     Route: 048
     Dates: start: 20080710
  8. HYDROCHLOROTHIAZIDE [Concomitant]
     Dosage: 25 MG, UNK
     Route: 048
     Dates: start: 20080829
  9. YASMIN [Suspect]
  10. FEXOFENADINE HYDROCHLORIDE [Concomitant]
     Dosage: 180 MG, UNK
     Route: 048
     Dates: start: 20080823
  11. YAZ [Suspect]
     Indication: PREMENSTRUAL SYNDROME
  12. DROSPIRENONE AND ETHINYL ESTRADIOL [Suspect]
  13. LISINOPRIL [Concomitant]
     Dosage: 20 MG, UNK
     Route: 048
     Dates: start: 20080823
  14. YASMIN [Suspect]
     Indication: CONTRACEPTION
     Dosage: UNK
     Route: 048
     Dates: start: 20010101, end: 20100101
  15. CEPHALEXIN [Concomitant]
     Dosage: 250 MG, UNK
     Route: 048
     Dates: start: 20080729
  16. OMEPRAZOLE [Concomitant]
     Dosage: 20 MG, UNK
     Route: 048
     Dates: start: 20080821
  17. DROSPIRENONE AND ETHINYL ESTRADIOL [Suspect]
     Indication: CONTRACEPTION
     Dosage: UNK
     Dates: start: 20010101, end: 20100101
  18. DROSPIRENONE AND ETHINYL ESTRADIOL [Suspect]
     Indication: PREMENSTRUAL SYNDROME
  19. METHYLPREDNISOLONE [Concomitant]
     Dosage: 4 MG, UNK
     Route: 048
     Dates: start: 20080729

REACTIONS (4)
  - INJURY [None]
  - PAIN [None]
  - CHOLELITHIASIS [None]
  - GALLBLADDER DISORDER [None]
